FAERS Safety Report 8602919 (Version 6)
Quarter: 2012Q4

REPORT INFORMATION
  Report Type: 
  Country: CA (occurrence: CA)
  Receive Date: 20120607
  Receipt Date: 20121218
  Transmission Date: 20130627
  Serious: Yes (Other)
  Sender: FDA-Public Use
  Company Number: PHHY2012CA047804

PATIENT
  Sex: Female

DRUGS (2)
  1. ZOMETA [Suspect]
     Indication: RENAL CELL CARCINOMA
     Dosage: 3.3 mg, every 2 months
     Route: 042
     Dates: start: 20120110
  2. CHEMOTHERAPEUTICS [Concomitant]

REACTIONS (8)
  - Speech disorder [Unknown]
  - Cheyne-Stokes respiration [Unknown]
  - Metastases to bone [Unknown]
  - Malaise [Unknown]
  - Feeling abnormal [Unknown]
  - Abasia [Unknown]
  - Pain [Unknown]
  - Constipation [Unknown]
